FAERS Safety Report 19131827 (Version 6)
Quarter: 2021Q3

REPORT INFORMATION
  Report Type: Report from Study
  Country: JP (occurrence: JP)
  Receive Date: 20210413
  Receipt Date: 20210924
  Transmission Date: 20211014
  Serious: Yes (Hospitalization)
  Sender: FDA-Public Use
  Company Number: JP-PFIZER INC-2021317011

PATIENT
  Age: 1 Year
  Sex: Female
  Weight: 9.6 kg

DRUGS (13)
  1. SIROLIMUS. [Suspect]
     Active Substance: SIROLIMUS
     Indication: VASCULAR MALFORMATION
     Dosage: 0.75 MG
     Route: 048
     Dates: start: 20201228, end: 20210221
  2. MIYA?BM [Concomitant]
     Active Substance: CLOSTRIDIUM BUTYRICUM SPORES STRAIN M-55
     Indication: DIARRHOEA
     Dosage: 0.333 GM,8 HR
     Route: 048
     Dates: start: 20210611
  3. HEPARINOID [Concomitant]
     Active Substance: CHONDROITIN SULFATE (BOVINE)
     Indication: DRY SKIN PROPHYLAXIS
  4. LOPERAMIDE [Concomitant]
     Active Substance: LOPERAMIDE
     Indication: DIARRHOEA
     Dosage: 0.3 G, 2X/DAY (0.3 GM,12 HR)
     Route: 065
     Dates: start: 20210222
  5. SIROLIMUS. [Suspect]
     Active Substance: SIROLIMUS
     Indication: HAEMANGIOMA
     Dosage: 0.98 MG, 1X/DAY
     Route: 048
     Dates: start: 20210222, end: 20210520
  6. BAKTAR [Concomitant]
     Active Substance: SULFAMETHOXAZOLE\TRIMETHOPRIM
     Indication: BACTERIAL INFECTION
     Dosage: 0.25 G, 2X/DAY (12 HR)
     Route: 065
     Dates: start: 20201228, end: 20210311
  7. HEPARINOID [Concomitant]
     Active Substance: CHONDROITIN SULFATE (BOVINE)
     Indication: DRY SKIN
     Dosage: UNK; (6 HR)
     Route: 065
     Dates: start: 20210104
  8. CEFCAPENE PIVOXIL HYDROCHLORIDE [Concomitant]
     Active Substance: CEFCAPENE PIVOXIL HYDROCHLORIDE
     Dosage: 9 MG/KG, 1X/DAY
     Route: 065
     Dates: start: 20210514
  9. SIROLIMUS. [Suspect]
     Active Substance: SIROLIMUS
     Indication: LYMPHANGIOMA
     Dosage: 1.27 MG
     Route: 048
     Dates: start: 20210521, end: 20210715
  10. BAKTAR [Concomitant]
     Active Substance: SULFAMETHOXAZOLE\TRIMETHOPRIM
     Indication: PROPHYLAXIS
     Dosage: 0.25 G, 2X/DAY (12HR)
     Route: 065
     Dates: start: 20210318
  11. ZINC OXIDE. [Concomitant]
     Active Substance: ZINC OXIDE
     Indication: DERMATITIS DIAPER
  12. ZINC OXIDE. [Concomitant]
     Active Substance: ZINC OXIDE
     Indication: DIARRHOEA
     Dosage: UNK
     Route: 065
     Dates: start: 20210222
  13. CEFCAPENE PIVOXIL HYDROCHLORIDE [Concomitant]
     Active Substance: CEFCAPENE PIVOXIL HYDROCHLORIDE
     Indication: PYREXIA
     Dosage: 1 G, 3X/DAY
     Route: 065
     Dates: start: 20210125

REACTIONS (3)
  - Upper respiratory tract inflammation [Recovered/Resolved]
  - Respiratory syncytial virus infection [Recovered/Resolved]
  - Bronchitis [Recovered/Resolved]

NARRATIVE: CASE EVENT DATE: 20210312
